FAERS Safety Report 6994660-9 (Version None)
Quarter: 2010Q3

REPORT INFORMATION
  Report Type: 
  Country: None (occurrence: None)
  Receive Date: 20100915
  Receipt Date: 20100915
  Transmission Date: 20110219
  Serious: Yes (Life-Threatening)
  Sender: FDA-Public Use
  Company Number: None

PATIENT
  Age: 80 Year
  Sex: Male
  Weight: 66.9 kg

DRUGS (1)
  1. MORPHINE [Suspect]
     Indication: SURGERY
     Dosage: 2 MG OTHER IV
     Route: 042
     Dates: start: 20100801, end: 20100801

REACTIONS (1)
  - RESPIRATORY DEPRESSION [None]
